FAERS Safety Report 4626244-1 (Version None)
Quarter: 2005Q2

REPORT INFORMATION
  Report Type: 
  Country: None (occurrence: None)
  Receive Date: 20050331
  Receipt Date: 20040708
  Transmission Date: 20051028
  Serious: Yes (Other)
  Sender: FDA-Public Use
  Company Number: 200413373BCC

PATIENT
  Age: 76 Year
  Sex: Female
  Weight: 79.3795 kg

DRUGS (3)
  1. ALEVE (CAPLET) [Suspect]
     Indication: ARTHRALGIA
     Dosage: 220 MG, QD, ORAL
     Route: 048
     Dates: start: 20040705, end: 20040707
  2. SULFASALAZINE [Concomitant]
  3. NORVASC [Concomitant]

REACTIONS (1)
  - HAEMATOCHEZIA [None]
